FAERS Safety Report 9989306 (Version 4)
Quarter: 2014Q2

REPORT INFORMATION
  Report Type: Spontaneous
  Country: US (occurrence: US)
  Receive Date: 20140310
  Receipt Date: 20140423
  Transmission Date: 20141212
  Serious: Yes (Other)
  Sender: FDA-Public Use
  Company Number: US-SA-2014SA028644

PATIENT
  Age: 78 Year
  Sex: Male

DRUGS (4)
  1. AVAPRO [Suspect]
     Indication: BLOOD PRESSURE
     Route: 065
     Dates: start: 2005
  2. AVAPRO [Suspect]
     Indication: BLOOD PRESSURE
     Route: 065
  3. PROTONIX [Concomitant]
     Indication: BARRETT^S OESOPHAGUS
  4. COUMADIN [Concomitant]

REACTIONS (8)
  - Prostate cancer [Unknown]
  - Adverse event [Unknown]
  - Blood pressure decreased [Unknown]
  - Pain in extremity [Not Recovered/Not Resolved]
  - Fasciitis [Not Recovered/Not Resolved]
  - Gastrointestinal disorder [Not Recovered/Not Resolved]
  - Insomnia [Unknown]
  - Muscle spasms [Unknown]
